FAERS Safety Report 13699146 (Version 1)
Quarter: 2017Q2

REPORT INFORMATION
  Report Type: Spontaneous
  Country: JP (occurrence: JP)
  Receive Date: 20170628
  Receipt Date: 20170628
  Transmission Date: 20170830
  Serious: Yes (Other)
  Sender: FDA-Public Use
  Company Number: JP-PFIZER INC-2017281412

PATIENT
  Age: 79 Year
  Sex: Male

DRUGS (3)
  1. LYRICA [Suspect]
     Active Substance: PREGABALIN
     Indication: ANALGESIC THERAPY
     Dosage: 100 MG, DAILY
     Route: 048
     Dates: start: 20170612
  2. TRAMCET [Concomitant]
     Active Substance: ACETAMINOPHEN\TRAMADOL
     Indication: ANALGESIC THERAPY
     Dosage: 150 MG, DAILY
     Route: 048
     Dates: start: 20170612
  3. LOXOPROFEN [Suspect]
     Active Substance: LOXOPROFEN
     Indication: ANALGESIC THERAPY
     Dosage: 180 MG, DAILY
     Route: 048
     Dates: start: 20170612

REACTIONS (3)
  - Diverticulum intestinal haemorrhagic [Unknown]
  - Condition aggravated [Unknown]
  - Small intestinal haemorrhage [Unknown]
